FAERS Safety Report 6337154-6 (Version None)
Quarter: 2009Q3

REPORT INFORMATION
  Report Type: 
  Country: None (occurrence: None)
  Receive Date: 20090831
  Receipt Date: 20090819
  Transmission Date: 20100115
  Serious: Yes (Hospitalization)
  Sender: FDA-Public Use
  Company Number: JP-000779

PATIENT
  Age: 34 Year
  Sex: Female

DRUGS (3)
  1. MENOTROPHIN (HMG-INJECTION) 150 IU [Suspect]
     Indication: OVULATION INDUCTION
     Dosage: (150 IU INTRAMUSCULAR)
     Route: 030
     Dates: start: 20090207, end: 20090213
  2. CLOMIPHENE /00061301/ (CLOMIPHENE) 100 MG [Suspect]
     Indication: OVULATION INDUCTION
     Dosage: (100 MG)
     Dates: start: 20090209, end: 20090213
  3. HCG (HCG) 5000 IU [Suspect]
     Indication: OVULATION INDUCTION
     Dosage: (5000 IU INTRAMUSCULAR)
     Route: 030

REACTIONS (5)
  - ECTOPIC PREGNANCY [None]
  - MATERNAL DRUGS AFFECTING FOETUS [None]
  - OVARIAN HYPERSTIMULATION SYNDROME [None]
  - PLEURAL EFFUSION [None]
  - WHITE BLOOD CELL COUNT INCREASED [None]
